FAERS Safety Report 5820195-2 (Version None)
Quarter: 2008Q3

REPORT INFORMATION
  Report Type: 
  Country: None (occurrence: None)
  Receive Date: 20080724
  Receipt Date: 20080718
  Transmission Date: 20090109
  Serious: Yes (Hospitalization)
  Sender: FDA-Public Use
  Company Number: US-BRISTOL-MYERS SQUIBB COMPANY-14268320

PATIENT
  Age: 43 Year
  Sex: Male
  Weight: 84 kg

DRUGS (4)
  1. ERBITUX [Suspect]
     Indication: ANAL CANCER
     Dosage: INITIATED:07-APR08,ASSOCIATED WITH EXPEDIATED REPORT:27-MAY08.
     Dates: start: 20080630, end: 20080630
  2. CISPLATIN [Suspect]
     Indication: ANAL CANCER
     Dosage: INITIATED:07-APR08,ASSOCIATED WITH EXPEDIATED REPORT:27-MAY08.
     Route: 042
     Dates: start: 20080630, end: 20080630
  3. FLUOROURACIL [Suspect]
     Indication: ANAL CANCER
     Dosage: INITIATED:07-APR08,ASSOCIATED WITH EXPEDIATED REPORT:27-MAY08.
     Route: 042
     Dates: start: 20080703, end: 20080703
  4. RADIATION THERAPY [Suspect]
     Indication: ANAL CANCER
     Dates: start: 20080630, end: 20080714

REACTIONS (12)
  - ANOREXIA [None]
  - DERMATITIS ACNEIFORM [None]
  - DIARRHOEA [None]
  - DIZZINESS [None]
  - FATIGUE [None]
  - HEADACHE [None]
  - NAUSEA [None]
  - PROCTALGIA [None]
  - PROCTITIS [None]
  - PYREXIA [None]
  - RADIATION SKIN INJURY [None]
  - VOMITING [None]
